FAERS Safety Report 18725015 (Version 1)
Quarter: 2021Q1

REPORT INFORMATION
  Report Type: Spontaneous
  Country: US (occurrence: US)
  Receive Date: 20210111
  Receipt Date: 20210111
  Transmission Date: 20210419
  Serious: No
  Sender: FDA-Public Use
  Company Number: None

PATIENT
  Sex: Male

DRUGS (1)
  1. OMEGA?3?ACID ETHYL ESTERS 1GM CAPSULES [Suspect]
     Active Substance: OMEGA-3-ACID ETHYL ESTERS

REACTIONS (1)
  - Death [None]
